FAERS Safety Report 14919537 (Version 1)
Quarter: 2018Q2

REPORT INFORMATION
  Report Type: Spontaneous
  Country: US (occurrence: US)
  Receive Date: 20180521
  Receipt Date: 20180521
  Transmission Date: 20180711
  Serious: No
  Sender: FDA-Public Use
  Company Number: US-EPIC PHARMA LLC-2017EPC01950

PATIENT
  Sex: Female

DRUGS (1)
  1. SULINDAC. [Suspect]
     Active Substance: SULINDAC
     Dosage: UNK

REACTIONS (1)
  - Gastrointestinal disorder [Unknown]
